FAERS Safety Report 9915873 (Version 1)
Quarter: 2014Q1

REPORT INFORMATION
  Report Type: Spontaneous
  Country: US (occurrence: None)
  Receive Date: 20140220
  Receipt Date: 20140220
  Transmission Date: 20141002
  Serious: Yes (Other)
  Sender: FDA-Public Use
  Company Number: None

PATIENT
  Age: 36 Year
  Sex: Female
  Weight: 57.61 kg

DRUGS (1)
  1. NORCO [Suspect]
     Indication: BACK PAIN
     Dosage: Q4-6 HRS
     Route: 048
     Dates: start: 20080502, end: 20080505

REACTIONS (2)
  - Nausea [None]
  - Vomiting [None]
